FAERS Safety Report 7307510-8 (Version None)
Quarter: 2011Q1

REPORT INFORMATION
  Report Type: 
  Country: None (occurrence: None)
  Receive Date: 20110223
  Receipt Date: 20100309
  Transmission Date: 20110831
  Serious: Yes (Hospitalization)
  Sender: FDA-Public Use
  Company Number: IL-RANBAXY-2010RR-40455

PATIENT
  Age: 46 Year
  Sex: Female

DRUGS (9)
  1. FENTANYL-100 [Suspect]
  2. VENLAFAXINE [Suspect]
  3. NALTREXONE [Suspect]
  4. OXYCODONE [Suspect]
  5. LORAZEPAM [Suspect]
  6. FLUVOXAMINE [Suspect]
  7. GABAPENTIN [Suspect]
  8. PROMETHAZINE [Suspect]
  9. DIAZEPAM [Suspect]

REACTIONS (6)
  - HERNIA [None]
  - INSOMNIA [None]
  - ASTHENIA [None]
  - DRUG DEPENDENCE [None]
  - DEPRESSION [None]
  - EUPHORIC MOOD [None]
